FAERS Safety Report 9631793 (Version 2)
Quarter: 2013Q4

REPORT INFORMATION
  Report Type: Spontaneous
  Country: US (occurrence: US)
  Receive Date: 20131018
  Receipt Date: 20131018
  Transmission Date: 20140711
  Serious: No
  Sender: FDA-Public Use
  Company Number: US-MYLANLABS-2013S1020940

PATIENT
  Age: 51 Year
  Sex: Female

DRUGS (3)
  1. LEVONORGESTREL AND ETHINYL ESTRADIOL TABLETS USP [Suspect]
     Indication: CONTRACEPTION
     Route: 048
     Dates: start: 20130811, end: 20130913
  2. ADVAIR [Concomitant]
     Indication: ASTHMA
     Dosage: ALLERGIES
  3. FLOVENT [Concomitant]
     Indication: ASTHMA
     Dosage: ALLERGIES

REACTIONS (1)
  - Hypoaesthesia [Recovering/Resolving]
